FAERS Safety Report 8178277-9 (Version None)
Quarter: 2012Q1

REPORT INFORMATION
  Report Type: 
  Country: None (occurrence: None)
  Receive Date: 20120301
  Receipt Date: 20120222
  Transmission Date: 20120608
  Serious: Yes (Hospitalization)
  Sender: FDA-Public Use
  Company Number: US-ABBOTT-12P-163-0906081-00

PATIENT
  Sex: Male

DRUGS (3)
  1. IMURAN [Concomitant]
     Indication: CROHN'S DISEASE
     Dosage: 50 MG DAILY
  2. HUMIRA [Suspect]
     Indication: CROHN'S DISEASE
     Dosage: 160 MG LOADING DOSE
     Dates: start: 20120215
  3. OMEPRAZOLE [Concomitant]
     Indication: GASTROOESOPHAGEAL REFLUX DISEASE
     Dosage: DAILY

REACTIONS (5)
  - DIZZINESS [None]
  - PRESYNCOPE [None]
  - INTESTINAL STENOSIS [None]
  - INJECTION SITE PAIN [None]
  - ABSCESS INTESTINAL [None]
